FAERS Safety Report 21739278 (Version 1)
Quarter: 2022Q4

REPORT INFORMATION
  Report Type: Spontaneous
  Country: US (occurrence: None)
  Receive Date: 20221215
  Receipt Date: 20221215
  Transmission Date: 20230113
  Serious: Yes (Life-Threatening, Hospitalization)
  Sender: FDA-Public Use
  Company Number: None

PATIENT
  Age: 63 Year
  Sex: Male
  Weight: 94 kg

DRUGS (1)
  1. NIACOR [Suspect]
     Active Substance: NIACIN
     Indication: Hyperlipidaemia
     Dosage: 500 MG EVERY DAY PO?
     Route: 048
     Dates: start: 20221021, end: 20221024

REACTIONS (4)
  - Flushing [None]
  - Chest discomfort [None]
  - Hypotension [None]
  - Supraventricular tachycardia [None]

NARRATIVE: CASE EVENT DATE: 20221024
